FAERS Safety Report 8219280-X (Version None)
Quarter: 2012Q1

REPORT INFORMATION
  Report Type: 
  Country: None (occurrence: None)
  Receive Date: 20120319
  Receipt Date: 20120305
  Transmission Date: 20120608
  Serious: Yes (Hospitalization, Other)
  Sender: FDA-Public Use
  Company Number: US-MYLANLABS-2012S1005776

PATIENT
  Sex: Male

DRUGS (11)
  1. LINDANE [Concomitant]
  2. CAPTOPRIL [Concomitant]
  3. ISONIAZID TAB [Concomitant]
  4. METOPROLOL SUCCINATE [Concomitant]
  5. ENALAPRIL [Concomitant]
  6. ATENOLOL [Concomitant]
  7. DIGOXIN [Suspect]
     Route: 048
     Dates: start: 20060306, end: 20080601
  8. PYRIDOXINE HCL [Concomitant]
  9. LASIX [Concomitant]
  10. AMOXICILLIN [Concomitant]
  11. COREG [Concomitant]

REACTIONS (29)
  - CARDIAC FAILURE CONGESTIVE [None]
  - CARDIAC VALVE DISEASE [None]
  - STRESS [None]
  - ANXIETY [None]
  - CALCIUM DEFICIENCY [None]
  - ELECTROCARDIOGRAM AMBULATORY [None]
  - NUCLEAR MAGNETIC RESONANCE IMAGING THORACIC [None]
  - CARDIAC FAILURE [None]
  - CARDIAC DISORDER [None]
  - DEPRESSION [None]
  - ELECTROLYTE IMBALANCE [None]
  - FRACTURE [None]
  - ATRIAL FIBRILLATION [None]
  - ANGINA PECTORIS [None]
  - ATRIAL FLUTTER [None]
  - X-RAY [None]
  - CATHETERISATION CARDIAC [None]
  - OSTEOPOROSIS [None]
  - ATRIOVENTRICULAR BLOCK [None]
  - ULTRASOUND CHEST [None]
  - ARRHYTHMIA [None]
  - CONGENITAL CARDIOVASCULAR ANOMALY [None]
  - HYPERSENSITIVITY [None]
  - IMPLANTABLE DEFIBRILLATOR INSERTION [None]
  - CHRONIC OBSTRUCTIVE PULMONARY DISEASE [None]
  - CARDIAC STRESS TEST [None]
  - CARDIOMYOPATHY [None]
  - CHEST PAIN [None]
  - RENAL DISORDER [None]
